FAERS Safety Report 8528905-0 (Version None)
Quarter: 2012Q3

REPORT INFORMATION
  Report Type: 
  Country: None (occurrence: None)
  Receive Date: 20120723
  Receipt Date: 20120716
  Transmission Date: 20120928
  Serious: No
  Sender: FDA-Public Use
  Company Number: US-PFIZER INC-2012174475

PATIENT
  Sex: Female
  Weight: 41.27 kg

DRUGS (3)
  1. NEURONTIN [Suspect]
     Dosage: UNK
     Dates: start: 20120201, end: 20120101
  2. NEURONTIN [Suspect]
     Dosage: 1200MG IN THE MORNING AND 800MG AT NIGHT
     Dates: start: 20111018, end: 20111001
  3. LYRICA [Suspect]
     Dosage: 100 MG, 2X/DAY
     Route: 048
     Dates: start: 20120706

REACTIONS (1)
  - DIZZINESS [None]
